FAERS Safety Report 8370472-9 (Version None)
Quarter: 2012Q2

REPORT INFORMATION
  Report Type: 
  Country: None (occurrence: None)
  Receive Date: 20120518
  Receipt Date: 20120517
  Transmission Date: 20120825
  Serious: Yes (Death)
  Sender: FDA-Public Use
  Company Number: PHFR2012GB002876

PATIENT
  Age: 68 Year
  Sex: Male

DRUGS (1)
  1. ONBREZ [Suspect]
     Dates: start: 20120327

REACTIONS (1)
  - DEATH [None]
